FAERS Safety Report 6703202-4 (Version None)
Quarter: 2010Q2

REPORT INFORMATION
  Report Type: 
  Country: None (occurrence: None)
  Receive Date: 20100430
  Receipt Date: 20100423
  Transmission Date: 20101027
  Serious: No
  Sender: FDA-Public Use
  Company Number: 2009BI013522

PATIENT
  Age: 26 Year
  Sex: Female

DRUGS (1)
  1. TYSABRI [Suspect]
     Indication: MULTIPLE SCLEROSIS
     Route: 042
     Dates: start: 20080722, end: 20100205

REACTIONS (13)
  - ARTHRALGIA [None]
  - BRONCHITIS [None]
  - DRUG WITHDRAWAL SYNDROME [None]
  - FATIGUE [None]
  - IMMUNE SYSTEM DISORDER [None]
  - INSOMNIA [None]
  - NASOPHARYNGITIS [None]
  - POST PROCEDURAL INFECTION [None]
  - SINUSITIS [None]
  - SOMNOLENCE [None]
  - UPPER RESPIRATORY TRACT INFECTION [None]
  - VIRAL INFECTION [None]
  - WRIST FRACTURE [None]
